FAERS Safety Report 9232616 (Version 1)
Quarter: 2013Q1

REPORT INFORMATION
  Report Type: Spontaneous
  Country: US (occurrence: None)
  Receive Date: 20121031
  Receipt Date: 20121031
  Transmission Date: 20140127
  Serious: No
  Sender: FDA-Public Use
  Company Number: PHEH2012US013288

PATIENT
  Age: 52 Year
  Sex: Male
  Weight: 176.04 kg

DRUGS (9)
  1. GILENYA (FTY) CAPSULE, 0.5MG [Suspect]
     Indication: MULTIPLE SCLEROSIS
     Route: 048
     Dates: start: 20111101
  2. ZOLOFT (SERTRALINE HYDROCHLORIDE) 50MG [Concomitant]
  3. CELEXA (CITALOPRAM HYDROBROMIDE) 40MG [Concomitant]
  4. PROVIGIL (MODAFINIL) 200MG [Concomitant]
  5. VITAMIN D (ERGOCALCIFEROL0 2000MG [Concomitant]
  6. MAGNESIUM (MAGNESIUM) 64MG [Concomitant]
  7. ACETYLSALICYLIC ACID). 81MG [Concomitant]
  8. NIFEDIPINE (NIFEDIPINE), 30MG [Concomitant]
  9. TESTOSTERONE (TESTOSTERONE) [Concomitant]

REACTIONS (1)
  - Epistaxis [None]
